FAERS Safety Report 9586634 (Version 3)
Quarter: 2013Q4

REPORT INFORMATION
  Report Type: Report from Study
  Country: DE (occurrence: DE)
  Receive Date: 20131003
  Receipt Date: 20131015
  Transmission Date: 20140711
  Serious: Yes (Death, Disabling, Other)
  Sender: FDA-Public Use
  Company Number: DE-ROCHE-1282373

PATIENT
  Age: 83 Year
  Sex: Female
  Weight: 45 kg

DRUGS (14)
  1. BEVACIZUMAB [Suspect]
     Indication: RECTAL CANCER METASTATIC
     Route: 065
     Dates: end: 20110110
  2. CAPECITABINE [Suspect]
     Indication: RECTAL CANCER METASTATIC
     Route: 048
     Dates: start: 20100920, end: 20120115
  3. CETUXIMAB [Suspect]
     Indication: RECTAL CANCER METASTATIC
     Route: 042
     Dates: start: 20111011, end: 20120115
  4. HYDROCHLOROTHIAZIDE [Concomitant]
     Indication: HYPERTENSION
     Route: 048
     Dates: end: 20120730
  5. VESDIL [Concomitant]
     Indication: HYPERTENSION
     Route: 048
  6. DIGIMERCK [Concomitant]
     Indication: CARDIAC FAILURE
     Route: 048
     Dates: end: 20120730
  7. BELOC-ZOK [Concomitant]
     Indication: HYPERTENSION
     Route: 048
     Dates: start: 20120730
  8. OMEP [Concomitant]
     Indication: GASTRITIS
     Route: 048
     Dates: end: 20120730
  9. IBUPROFEN [Concomitant]
     Indication: PAIN
     Route: 048
     Dates: end: 20120730
  10. LOPERAMIDE [Concomitant]
     Indication: DIARRHOEA
     Route: 048
  11. METAMIZOL [Concomitant]
     Indication: PAIN
     Route: 048
     Dates: start: 201101, end: 20120730
  12. TILIDIN [Concomitant]
     Indication: PAIN
     Route: 048
     Dates: start: 201101, end: 20120730
  13. RAMIPRIL [Concomitant]
     Indication: HYPERTENSION
     Route: 048
     Dates: end: 20120730
  14. XARELTO [Concomitant]
     Indication: ANTICOAGULANT THERAPY
     Route: 048
     Dates: start: 20120515, end: 20120730

REACTIONS (5)
  - Death [Fatal]
  - Cerebrovascular accident [Recovered/Resolved with Sequelae]
  - Embolism arterial [Recovered/Resolved]
  - Rash [Recovered/Resolved]
  - Nail bed inflammation [Recovered/Resolved]
